FAERS Safety Report 18589342 (Version 2)
Quarter: 2020Q4

REPORT INFORMATION
  Report Type: Spontaneous
  Country: AU (occurrence: AU)
  Receive Date: 20201208
  Receipt Date: 20201212
  Transmission Date: 20210114
  Serious: Yes (Hospitalization, Other)
  Sender: FDA-Public Use
  Company Number: AU-DRREDDYS-USA/AUS/20/0129800

PATIENT
  Age: 33 Year
  Sex: Female

DRUGS (2)
  1. IMATINIB MESYLATE TABLETS [Suspect]
     Active Substance: IMATINIB MESYLATE
     Indication: CHRONIC MYELOID LEUKAEMIA
     Dosage: 15 MONTHS
     Dates: end: 20190807
  2. DASATINIB. [Suspect]
     Active Substance: DASATINIB
     Indication: CHRONIC MYELOID LEUKAEMIA
     Dates: start: 20190807

REACTIONS (10)
  - Arteriospasm coronary [Unknown]
  - Sinus tachycardia [Recovered/Resolved]
  - Cardiac arrest [Unknown]
  - Drug resistance [Unknown]
  - Syncope [Unknown]
  - Ventricular arrhythmia [Recovered/Resolved]
  - Chest pain [Unknown]
  - Ventricular fibrillation [Unknown]
  - Ventricular extrasystoles [Unknown]
  - Thrombocytosis [Unknown]

NARRATIVE: CASE EVENT DATE: 20190617
